FAERS Safety Report 5196076-7 (Version None)
Quarter: 2006Q4

REPORT INFORMATION
  Report Type: 
  Country: None (occurrence: None)
  Receive Date: 20061226
  Receipt Date: 20061219
  Transmission Date: 20070319
  Serious: Yes (Hospitalization, Other)
  Sender: FDA-Public Use
  Company Number: FRWYE880519DEC06

PATIENT
  Age: 8 Year
  Sex: Male

DRUGS (7)
  1. PIPERACILLIN AND TAZOBACTAM [Suspect]
     Indication: PNEUMONIA
     Dosage: INTRAVENOUS
     Route: 042
     Dates: start: 20060801
  2. AMIKACIN [Suspect]
     Indication: PNEUMONIA
     Dates: start: 20060801
  3. CIPROFLOXACIN [Suspect]
     Indication: PNEUMONIA
     Dates: start: 20060801
  4. FORTUM (CEFTAZIDIME PENTAHYDRATE, , 0) [Suspect]
     Indication: PNEUMONIA
     Dates: start: 20060801
  5. TIENAM (CILASTATIN/IMIPENEM, , 0) [Suspect]
     Indication: PNEUMONIA
     Dates: start: 20060801
  6. VANCOMYCIN [Suspect]
     Indication: PNEUMONIA
     Dates: start: 20060801
  7. ZYVOXID (LINEZOLID, , 0) [Suspect]
     Indication: PNEUMONIA

REACTIONS (1)
  - SERUM SICKNESS [None]
